FAERS Safety Report 17146098 (Version 1)
Quarter: 2019Q4

REPORT INFORMATION
  Report Type: Spontaneous
  Country: US (occurrence: US)
  Receive Date: 20191212
  Receipt Date: 20191212
  Transmission Date: 20200122
  Serious: No
  Sender: FDA-Public Use
  Company Number: US-TEVA-2019-US-1149374

PATIENT
  Weight: 95.34 kg

DRUGS (3)
  1. MODAFINIL. [Suspect]
     Active Substance: MODAFINIL
     Indication: NARCOLEPSY
     Dosage: 400 MILLIGRAM DAILY;
     Route: 065
     Dates: start: 1999
  2. LEXAPRO [Interacting]
     Active Substance: ESCITALOPRAM OXALATE
     Route: 065
  3. DOXEPIN [Interacting]
     Active Substance: DOXEPIN
     Route: 065

REACTIONS (3)
  - Sedation [Unknown]
  - Drug interaction [Unknown]
  - Somnolence [Not Recovered/Not Resolved]
